FAERS Safety Report 22169278 (Version 2)
Quarter: 2023Q2

REPORT INFORMATION
  Report Type: Other
  Country: US (occurrence: US)
  Receive Date: 20230404
  Receipt Date: 20230419
  Transmission Date: 20230722
  Serious: Yes (Hospitalization)
  Sender: FDA-Public Use
  Company Number: US-ALVOGEN-2023089693

PATIENT
  Age: 68 Year
  Sex: Female

DRUGS (1)
  1. NAPROXEN [Suspect]
     Active Substance: NAPROXEN
     Indication: Pain
     Dosage: HAD TAKEN INCREASED AMOUNTS OVER THE PAST TWO WEEKS.

REACTIONS (1)
  - Evans syndrome [Recovered/Resolved]
